FAERS Safety Report 15778723 (Version 1)
Quarter: 2019Q1

REPORT INFORMATION
  Report Type: Spontaneous
  Country: CN (occurrence: CN)
  Receive Date: 20190101
  Receipt Date: 20190101
  Transmission Date: 20190417
  Serious: Yes (Disabling)
  Sender: FDA-Public Use
  Company Number: CN-ROCHE-2237647

PATIENT
  Age: 64 Year
  Sex: Male
  Weight: 52 kg

DRUGS (8)
  1. SODIUM CHLORIDE. [Concomitant]
     Active Substance: SODIUM CHLORIDE
     Dosage: SOLVENT FOR CYCLOPHOSPHAMIDE FOR INJECTION
     Route: 041
     Dates: start: 20180804, end: 20181027
  2. GLUCOSE [Concomitant]
     Active Substance: DEXTROSE
     Dosage: SOLVENT FOR DOXORUBICIN HYDROCHLORIDE LIPOSOME INJECTION
     Route: 041
     Dates: start: 20180804, end: 20181027
  3. VINDESINE SULFATE [Concomitant]
     Active Substance: VINDESINE SULFATE
     Indication: CHEMOTHERAPY
     Route: 042
     Dates: start: 20180804, end: 20181027
  4. CYCLOPHOSPHAMIDE. [Concomitant]
     Active Substance: CYCLOPHOSPHAMIDE
     Indication: CHEMOTHERAPY
     Route: 041
     Dates: start: 20180804, end: 20181027
  5. DOXORUBICIN HYDROCHLORIDE. [Concomitant]
     Active Substance: DOXORUBICIN HYDROCHLORIDE
     Indication: CHEMOTHERAPY
     Dosage: LIPOSOME INJECTION
     Route: 041
     Dates: start: 20180804, end: 20181027
  6. SODIUM CHLORIDE. [Concomitant]
     Active Substance: SODIUM CHLORIDE
     Dosage: SOLVENT FOR RITUXIMAB
     Route: 041
     Dates: start: 20180804, end: 20181027
  7. SODIUM CHLORIDE. [Concomitant]
     Active Substance: SODIUM CHLORIDE
     Dosage: SOLVENT FOR VINDESINE SULFATE FOR INJECTION
     Route: 042
     Dates: start: 20180804, end: 20181027
  8. MABTHERA [Suspect]
     Active Substance: RITUXIMAB
     Indication: NON-HODGKIN^S LYMPHOMA
     Route: 041
     Dates: start: 20180804, end: 20181027

REACTIONS (2)
  - Pulmonary fibrosis [Recovering/Resolving]
  - Pneumonitis [Recovering/Resolving]

NARRATIVE: CASE EVENT DATE: 20181026
